FAERS Safety Report 8968122 (Version 2)
Quarter: 2013Q1

REPORT INFORMATION
  Report Type: Report from Study
  Country: US (occurrence: US)
  Receive Date: 20121217
  Receipt Date: 20130208
  Transmission Date: 20140127
  Serious: Yes (Hospitalization, Other)
  Sender: FDA-Public Use
  Company Number: US-ABBOTT-12P-163-1019886-00

PATIENT
  Age: 65 None
  Sex: Male
  Weight: 90.35 kg

DRUGS (14)
  1. HUMIRA PEN [Suspect]
     Indication: RHEUMATOID ARTHRITIS
     Dates: start: 2007
  2. COCO BUTTER [Suspect]
     Indication: WOUND TREATMENT
     Dates: start: 201211
  3. ASPIRIN [Concomitant]
     Indication: PRODUCT USED FOR UNKNOWN INDICATION
  4. FENOFIBRATE [Concomitant]
     Indication: BLOOD CHOLESTEROL INCREASED
  5. LISINOPRIL [Concomitant]
     Indication: HYPERTENSION
  6. GLIPIZIDE [Concomitant]
     Indication: TYPE 2 DIABETES MELLITUS
  7. CYMBALTA [Concomitant]
     Indication: RHEUMATOID ARTHRITIS
  8. CYMBALTA [Concomitant]
     Indication: DEPRESSION
  9. CYMBALTA [Concomitant]
     Indication: ARTHRALGIA
  10. FOLIC ACID [Concomitant]
     Indication: PRODUCT USED FOR UNKNOWN INDICATION
  11. LUNESTA [Concomitant]
     Indication: INSOMNIA
  12. GABAPENTIN [Concomitant]
     Indication: RHEUMATOID ARTHRITIS
  13. SIMVASTATIN [Concomitant]
     Indication: BLOOD CHOLESTEROL INCREASED
  14. METHOTREXATE [Concomitant]
     Indication: RHEUMATOID ARTHRITIS

REACTIONS (11)
  - Rheumatoid arthritis [Not Recovered/Not Resolved]
  - Nerve compression [Recovered/Resolved]
  - Paraesthesia [Not Recovered/Not Resolved]
  - Back pain [Not Recovered/Not Resolved]
  - Arthralgia [Not Recovered/Not Resolved]
  - Bone erosion [Recovered/Resolved]
  - Arthropathy [Unknown]
  - Postoperative wound infection [Recovering/Resolving]
  - Arthralgia [Recovering/Resolving]
  - Device component issue [Not Recovered/Not Resolved]
  - Joint range of motion decreased [Not Recovered/Not Resolved]
